FAERS Safety Report 7003136-4 (Version None)
Quarter: 2010Q3

REPORT INFORMATION
  Report Type: 
  Country: None (occurrence: None)
  Receive Date: 20100920
  Receipt Date: 20100309
  Transmission Date: 20110219
  Serious: No
  Sender: FDA-Public Use
  Company Number: US-ASTRAZENECA-2009SE20204

PATIENT
  Age: 53 Year
  Sex: Female
  Weight: 88.9 kg

DRUGS (5)
  1. SEROQUEL [Suspect]
     Indication: DEPRESSION
     Dosage: 200 TO 400 MG
     Route: 048
     Dates: start: 20040101, end: 20080901
  2. SEROQUEL [Suspect]
     Indication: BIPOLAR DISORDER
     Dosage: 200 TO 400 MG
     Route: 048
     Dates: start: 20040101, end: 20080901
  3. TRAZODONE HCL [Concomitant]
     Indication: DEPRESSION
  4. ZYPREXA [Concomitant]
  5. WELLBUTRIN [Concomitant]

REACTIONS (2)
  - OBESITY [None]
  - TYPE 2 DIABETES MELLITUS [None]
